FAERS Safety Report 14090575 (Version 6)
Quarter: 2020Q1

REPORT INFORMATION
  Report Type: Report from Study
  Country: GB (occurrence: GB)
  Receive Date: 20171015
  Receipt Date: 20200306
  Transmission Date: 20200409
  Serious: Yes (Hospitalization, Other)
  Sender: FDA-Public Use
  Company Number: GB-BRISTOL-MYERS SQUIBB COMPANY-BMS-2017-080264

PATIENT
  Sex: Female

DRUGS (2)
  1. ABATACEPT [Suspect]
     Active Substance: ABATACEPT
     Indication: RHEUMATOID ARTHRITIS
     Dosage: 125 MG, QWK
     Route: 058
     Dates: start: 20170911
  2. METHOTREXATE. [Suspect]
     Active Substance: METHOTREXATE
     Indication: PRODUCT USED FOR UNKNOWN INDICATION
     Dosage: UNK
     Route: 065

REACTIONS (13)
  - Product dose omission [Unknown]
  - Nodule [Unknown]
  - Joint injury [Unknown]
  - Malaise [Unknown]
  - Dizziness [Unknown]
  - Vocal cord disorder [Unknown]
  - Fall [Unknown]
  - Abdominal pain upper [Unknown]
  - Arthralgia [Unknown]
  - Oropharyngeal pain [Unknown]
  - Head injury [Unknown]
  - Grip strength decreased [Unknown]
  - Diarrhoea [Unknown]
